FAERS Safety Report 25164135 (Version 1)
Quarter: 2025Q2

REPORT INFORMATION
  Report Type: Spontaneous
  Country: JP (occurrence: JP)
  Receive Date: 20250405
  Receipt Date: 20250405
  Transmission Date: 20250716
  Serious: Yes (Hospitalization, Other)
  Sender: CADILA
  Company Number: JP-CPL-005187

PATIENT
  Age: 69 Year
  Sex: Male
  Weight: 97 kg

DRUGS (5)
  1. TELMISARTAN [Interacting]
     Active Substance: TELMISARTAN
     Indication: Product used for unknown indication
  2. ATENOLOL [Interacting]
     Active Substance: ATENOLOL
     Indication: Product used for unknown indication
  3. AMLODIPINE [Interacting]
     Active Substance: AMLODIPINE BESYLATE
     Indication: Product used for unknown indication
  4. METFORMIN [Suspect]
     Active Substance: METFORMIN HYDROCHLORIDE
     Indication: Product used for unknown indication
  5. EMPAGLIFLOZIN [Suspect]
     Active Substance: EMPAGLIFLOZIN
     Indication: Product used for unknown indication

REACTIONS (4)
  - BRASH syndrome [Recovered/Resolved]
  - Lactic acidosis [Recovered/Resolved]
  - Drug-disease interaction [Unknown]
  - Drug level increased [Recovered/Resolved]
